FAERS Safety Report 23229260 (Version 1)
Quarter: 2023Q4

REPORT INFORMATION
  Report Type: Spontaneous
  Country: PY (occurrence: PY)
  Receive Date: 20231127
  Receipt Date: 20231127
  Transmission Date: 20240109
  Serious: Yes (Other)
  Sender: FDA-Public Use
  Company Number: PY-NOVOPROD-1138001

PATIENT
  Age: 61 Year
  Sex: Female
  Weight: 78 kg

DRUGS (9)
  1. VICTOZA [Suspect]
     Active Substance: LIRAGLUTIDE
     Indication: Blood glucose abnormal
     Dosage: 1.8 (UNITS NOT REPORTED) QD
     Route: 058
     Dates: start: 202301
  2. VICTOZA [Suspect]
     Active Substance: LIRAGLUTIDE
     Indication: Blood pressure abnormal
  3. VICTOZA [Suspect]
     Active Substance: LIRAGLUTIDE
     Indication: Blood triglycerides abnormal
  4. VICTOZA [Suspect]
     Active Substance: LIRAGLUTIDE
     Indication: Blood cholesterol abnormal
  5. ATORVASTATIN [Concomitant]
     Active Substance: ATORVASTATIN
     Indication: Blood triglycerides abnormal
     Dosage: 1 DOSE QD
     Route: 048
     Dates: start: 2022
  6. ATORVASTATIN [Concomitant]
     Active Substance: ATORVASTATIN
     Indication: Blood cholesterol abnormal
  7. LOSARTAN [Concomitant]
     Active Substance: LOSARTAN
     Indication: Blood pressure abnormal
     Dosage: 1 DOSE QD
     Route: 048
     Dates: start: 2021
  8. METFORMIN [Concomitant]
     Active Substance: METFORMIN HYDROCHLORIDE
     Indication: Blood glucose abnormal
     Dosage: 1 DOSE QD
     Route: 048
     Dates: start: 2020
  9. CALCIUM [Concomitant]
     Active Substance: CALCIUM
     Indication: Bone disorder
     Dosage: 1 DOSE QD
     Route: 048
     Dates: start: 202310

REACTIONS (4)
  - Cataract [Not Recovered/Not Resolved]
  - Fall [Recovering/Resolving]
  - Joint injury [Recovering/Resolving]
  - Weight decreased [Recovered/Resolved]

NARRATIVE: CASE EVENT DATE: 20230301
